FAERS Safety Report 20490585 (Version 1)
Quarter: 2022Q1

REPORT INFORMATION
  Report Type: Spontaneous
  Country: US (occurrence: None)
  Receive Date: 20220218
  Receipt Date: 20220218
  Transmission Date: 20220423
  Serious: Yes (Disabling)
  Sender: FDA-Public Use
  Company Number: None

PATIENT
  Age: 69 Year
  Sex: Female
  Weight: 140.61 kg

DRUGS (21)
  1. FLUCONAZOLE [Suspect]
     Active Substance: FLUCONAZOLE
     Indication: Pharyngeal erythema
     Dosage: OTHER QUANTITY : 11 PILLS;?OTHER FREQUENCY : TIW THEN 1 DAILY;?
     Route: 048
     Dates: start: 20211207, end: 20211217
  2. FLUCONAZOLE [Suspect]
     Active Substance: FLUCONAZOLE
     Indication: Pharyngeal swelling
  3. FLUCONAZOLE [Suspect]
     Active Substance: FLUCONAZOLE
     Indication: Fungal infection
  4. OMEPRAZOLE [Suspect]
     Active Substance: OMEPRAZOLE
  5. ASPIRIN [Concomitant]
     Active Substance: ASPIRIN
  6. Aligh [Concomitant]
  7. Propionatte [Concomitant]
  8. CALTRATE WITH VITAMIN D [Concomitant]
     Active Substance: CALCIUM CARBONATE\CHOLECALCIFEROL
  9. Centrum Vitamin [Concomitant]
  10. VITAMIN D3 [Concomitant]
     Active Substance: CHOLECALCIFEROL
  11. METFORMIN [Concomitant]
  12. METOPROLOL [Concomitant]
     Active Substance: METOPROLOL
  13. LORATADINE [Concomitant]
     Active Substance: LORATADINE
  14. Amolodipine [Concomitant]
  15. BENAZEPRIL [Concomitant]
     Active Substance: BENAZEPRIL HYDROCHLORIDE
  16. TRAMADOL [Concomitant]
     Active Substance: TRAMADOL
  17. Ipratroplum [Concomitant]
  18. BUDESONIDE [Concomitant]
  19. ATORVASTATIN [Concomitant]
     Active Substance: ATORVASTATIN
  20. Hydrocholorthiazide [Concomitant]
  21. Nitrogine [Concomitant]

REACTIONS (3)
  - Skin exfoliation [None]
  - Pruritus [None]
  - Erythema [None]

NARRATIVE: CASE EVENT DATE: 20211217
